FAERS Safety Report 7103894-4 (Version None)
Quarter: 2010Q4

REPORT INFORMATION
  Report Type: 
  Country: None (occurrence: None)
  Receive Date: 20101115
  Receipt Date: 20101105
  Transmission Date: 20110411
  Serious: Yes (Hospitalization)
  Sender: FDA-Public Use
  Company Number: PHHO2010DE16732

PATIENT
  Sex: Female
  Weight: 85.2 kg

DRUGS (1)
  1. STI571/CGP57148B T35717+CAPS [Suspect]
     Indication: CHRONIC MYELOID LEUKAEMIA
     Dosage: 400 MG, QD
     Route: 048
     Dates: start: 20100211

REACTIONS (6)
  - ABDOMINAL DISCOMFORT [None]
  - DEPRESSION [None]
  - HEADACHE [None]
  - MENINGIOMA [None]
  - NAUSEA [None]
  - VOMITING [None]
